FAERS Safety Report 6122317-5 (Version None)
Quarter: 2009Q1

REPORT INFORMATION
  Report Type: 
  Country: None (occurrence: None)
  Receive Date: 20090310
  Receipt Date: 20090227
  Transmission Date: 20090719
  Serious: Yes (Other)
  Sender: FDA-Public Use
  Company Number: AECAN200900029

PATIENT
  Age: 47 Year
  Sex: Male
  Weight: 100 kg

DRUGS (8)
  1. GAMUNEX [Suspect]
     Indication: SEPSIS
     Dosage: 40 GM; 1X; IV
     Route: 042
     Dates: start: 20090203, end: 20090203
  2. GAMUNEX [Suspect]
     Indication: TOXIC SHOCK SYNDROME
     Dosage: 40 GM; 1X; IV
     Route: 042
     Dates: start: 20090203, end: 20090203
  3. LANSOPRAZOLE [Concomitant]
  4. CLINDAMYCIN HCL [Concomitant]
  5. HEPARIN [Concomitant]
  6. PENICILLIN NOS [Concomitant]
  7. SIMETHICONE [Concomitant]
  8. ACETAMINOPHEN [Concomitant]

REACTIONS (5)
  - BLOOD PRESSURE INCREASED [None]
  - CHILLS [None]
  - RESPIRATORY RATE INCREASED [None]
  - TACHYCARDIA [None]
  - TREMOR [None]
